FAERS Safety Report 4816450-5 (Version None)
Quarter: 2005Q4

REPORT INFORMATION
  Report Type: 
  Country: None (occurrence: None)
  Receive Date: 20051028
  Receipt Date: 20051013
  Transmission Date: 20060501
  Serious: Yes (Disabling, Other)
  Sender: FDA-Public Use
  Company Number: CH-2005-020655

PATIENT
  Age: 38 Year
  Sex: Female
  Weight: 91 kg

DRUGS (1)
  1. BETASERON [Suspect]
     Indication: MULTIPLE SCLEROSIS
     Dosage: 8 MIU, 1XDAY, SUBCUTANEOUS
     Route: 058
     Dates: start: 19990101

REACTIONS (11)
  - FATIGUE [None]
  - HEADACHE [None]
  - INFLUENZA LIKE ILLNESS [None]
  - MUSCLE SPASMS [None]
  - NAUSEA [None]
  - PAIN [None]
  - PARAESTHESIA [None]
  - PARALYSIS [None]
  - PYREXIA [None]
  - TACHYCARDIA [None]
  - VERTIGO [None]
